FAERS Safety Report 12998171 (Version 6)
Quarter: 2017Q2

REPORT INFORMATION
  Report Type: Spontaneous
  Country: US (occurrence: US)
  Receive Date: 20161205
  Receipt Date: 20170418
  Transmission Date: 20170830
  Serious: Yes (Other)
  Sender: FDA-Public Use
  Company Number: US-PFIZER INC-2016554807

PATIENT
  Age: 70 Year
  Sex: Female
  Weight: 79.5 kg

DRUGS (3)
  1. SUTENT [Suspect]
     Active Substance: SUNITINIB MALATE
     Indication: PANCREATIC CARCINOMA
     Dosage: 25 MG, DAILY (Q 28DAYS)
     Route: 048
     Dates: start: 20161110
  2. SUTENT [Suspect]
     Active Substance: SUNITINIB MALATE
     Dosage: 25 MG, CYCLIC (DAILY Q 28DAYS)
     Route: 048
     Dates: start: 20161110, end: 201704
  3. SUTENT [Suspect]
     Active Substance: SUNITINIB MALATE
     Dosage: 25 MG, CYCLIC (DAILY Q 28DAYS)
     Route: 048
     Dates: start: 20161110

REACTIONS (8)
  - Tongue disorder [Unknown]
  - Ageusia [Unknown]
  - Oral pain [Unknown]
  - Stomatitis [Not Recovered/Not Resolved]
  - Dry mouth [Unknown]
  - Blood pressure increased [Unknown]
  - Neoplasm progression [Unknown]
  - Balance disorder [Unknown]
